FAERS Safety Report 11650098 (Version 3)
Quarter: 2025Q3

REPORT INFORMATION
  Report Type: Spontaneous
  Country: US (occurrence: US)
  Receive Date: 20151021
  Receipt Date: 20250702
  Transmission Date: 20251021
  Serious: No
  Sender: PURDUE
  Company Number: US-PURDUE-USA-2015-0126245

PATIENT
  Sex: Female

DRUGS (3)
  1. OXYCONTIN [Suspect]
     Active Substance: OXYCODONE HYDROCHLORIDE
     Indication: Product used for unknown indication
     Route: 048
     Dates: start: 2015
  2. OXYCONTIN [Suspect]
     Active Substance: OXYCODONE HYDROCHLORIDE
     Route: 048
     Dates: start: 201509, end: 201509
  3. OXYCONTIN [Suspect]
     Active Substance: OXYCODONE HYDROCHLORIDE
     Route: 048
     Dates: start: 2005

REACTIONS (7)
  - Skin discolouration [Recovered/Resolved]
  - Pain [Unknown]
  - Abdominal pain upper [Unknown]
  - Product colour issue [Unknown]
  - Drug ineffective [Unknown]
  - Therapeutic product effect decreased [Unknown]
  - Breakthrough pain [Unknown]

NARRATIVE: CASE EVENT DATE: 20050101
